FAERS Safety Report 17054395 (Version 8)
Quarter: 2023Q4

REPORT INFORMATION
  Report Type: Spontaneous
  Country: US (occurrence: US)
  Receive Date: 20191120
  Receipt Date: 20231012
  Transmission Date: 20240109
  Serious: Yes (Hospitalization, Other)
  Sender: FDA-Public Use
  Company Number: US-VERTEX PHARMACEUTICALS-2019-011346

PATIENT
  Age: 22 Year
  Sex: Female
  Weight: 63 kg

DRUGS (12)
  1. TRIKAFTA [Suspect]
     Active Substance: ELEXACAFTOR\IVACAFTOR\TEZACAFTOR
     Indication: Cystic fibrosis
     Dosage: 2 ORANGE TABS AM AND 1 BLUE TAB PM
     Route: 048
     Dates: start: 20191110, end: 20191117
  2. TRIKAFTA [Suspect]
     Active Substance: ELEXACAFTOR\IVACAFTOR\TEZACAFTOR
     Dosage: LOW DOSE
     Route: 048
     Dates: start: 20230126
  3. TRIKAFTA [Suspect]
     Active Substance: ELEXACAFTOR\IVACAFTOR\TEZACAFTOR
     Dosage: FULL DOSE
     Route: 048
  4. KYLEENA [Concomitant]
     Active Substance: LEVONORGESTREL
     Dosage: 17.5MCG/24IUD
  5. VITAMIN D2 [Concomitant]
     Active Substance: ERGOCALCIFEROL
  6. NUZYRA [Concomitant]
     Active Substance: OMADACYCLINE
  7. LEVOFLOXACIN [Concomitant]
     Active Substance: LEVOFLOXACIN
  8. AZITHROMYCIN [Concomitant]
     Active Substance: AZITHROMYCIN
  9. CREON [Concomitant]
     Active Substance: PANCRELIPASE AMYLASE\PANCRELIPASE LIPASE\PANCRELIPASE PROTEASE
     Dosage: 12K-38K-60 CAPSULE DR
  10. ALBUTEROL SULFATE [Concomitant]
     Active Substance: ALBUTEROL SULFATE
  11. TOBI PODHALER [Concomitant]
     Active Substance: TOBRAMYCIN
  12. PREDNISONE [Concomitant]
     Active Substance: PREDNISONE

REACTIONS (10)
  - Anaphylactic reaction [Recovered/Resolved]
  - Peripheral swelling [Recovered/Resolved]
  - Contusion [Recovered/Resolved]
  - Paraesthesia [Unknown]
  - Brain fog [Recovering/Resolving]
  - Fatigue [Unknown]
  - Muscular weakness [Unknown]
  - Hospitalisation [Unknown]
  - General physical health deterioration [Recovering/Resolving]
  - Depressed mood [Recovering/Resolving]

NARRATIVE: CASE EVENT DATE: 20191111
